FAERS Safety Report 17816996 (Version 1)
Quarter: 2020Q2

REPORT INFORMATION
  Report Type: Spontaneous
  Country: US (occurrence: US)
  Receive Date: 20200522
  Receipt Date: 20200522
  Transmission Date: 20200714
  Serious: Yes (Death, Other)
  Sender: FDA-Public Use
  Company Number: NVSC2020US137219

PATIENT
  Sex: Female

DRUGS (1)
  1. MAYZENT [Suspect]
     Active Substance: SIPONIMOD
     Indication: PRODUCT USED FOR UNKNOWN INDICATION
     Dosage: UNK
     Route: 065

REACTIONS (8)
  - Cardiac failure congestive [Fatal]
  - Fall [Unknown]
  - Eye disorder [Unknown]
  - Pneumonia [Fatal]
  - Feeling abnormal [Unknown]
  - Multiple sclerosis [Unknown]
  - Skin lesion [Unknown]
  - Balance disorder [Unknown]
